FAERS Safety Report 11240815 (Version 3)
Quarter: 2015Q3

REPORT INFORMATION
  Report Type: Spontaneous
  Country: JP (occurrence: JP)
  Receive Date: 20150706
  Receipt Date: 20150807
  Transmission Date: 20151125
  Serious: Yes (Hospitalization, Other)
  Sender: FDA-Public Use
  Company Number: JP-PFIZER INC-2015219502

PATIENT
  Age: 67 Year
  Sex: Male

DRUGS (7)
  1. CHAMPIX [Suspect]
     Active Substance: VARENICLINE TARTRATE
     Dosage: 1 MG, 2X/DAY
     Route: 048
     Dates: start: 20150626, end: 20150626
  2. CHAMPIX [Suspect]
     Active Substance: VARENICLINE TARTRATE
     Dosage: 0.5 MG, 2X/DAY
     Route: 048
     Dates: start: 20150622, end: 20150625
  3. UNISIA [Suspect]
     Active Substance: AMLODIPINE BESYLATE\CANDESARTAN CILEXETIL
     Dosage: UNK
     Route: 048
  4. FLUITRAN [Concomitant]
     Active Substance: TRICHLORMETHIAZIDE
     Dosage: 1 MG, DAILY
     Route: 048
  5. ARTIST [Suspect]
     Active Substance: CARVEDILOL
     Dosage: 20 MG, DAILY
     Route: 048
  6. CHAMPIX [Suspect]
     Active Substance: VARENICLINE TARTRATE
     Indication: SMOKING CESSATION THERAPY
     Dosage: 0.5 MG, 1X/DAY
     Route: 048
     Dates: start: 20150619, end: 20150621
  7. MEXITIL [Suspect]
     Active Substance: MEXILETINE HYDROCHLORIDE
     Dosage: 300 MG, DAILY
     Route: 048

REACTIONS (8)
  - Infection [Unknown]
  - Heart rate decreased [None]
  - Vomiting [Unknown]
  - Disease progression [None]
  - Arteriosclerosis [None]
  - Cerebellar infarction [Recovering/Resolving]
  - Blood pressure systolic increased [None]
  - Diarrhoea [Unknown]

NARRATIVE: CASE EVENT DATE: 20150626
